FAERS Safety Report 15301167 (Version 1)
Quarter: 2018Q3

REPORT INFORMATION
  Report Type: Spontaneous
  Country: DE (occurrence: DE)
  Receive Date: 20180821
  Receipt Date: 20180821
  Transmission Date: 20181010
  Serious: Yes (Death, Life-Threatening, Hospitalization, Other)
  Sender: FDA-Public Use
  Company Number: DE-BAUSCH-BL-2018-022449

PATIENT
  Age: 68 Year
  Sex: Male

DRUGS (3)
  1. DEXAMETHASONE. [Suspect]
     Active Substance: DEXAMETHASONE
     Indication: PLASMACYTOMA
     Dosage: DAY 1 PLUS 2 WEEKLY
     Route: 048
     Dates: start: 201804, end: 201805
  2. REVLIMID [Suspect]
     Active Substance: LENALIDOMIDE
     Indication: PLASMACYTOMA
     Dosage: 3 WEEK, 1 WEEK, BREAK
     Route: 048
     Dates: start: 201804, end: 201805
  3. DARZALEX [Suspect]
     Active Substance: DARATUMUMAB
     Indication: PLASMACYTOMA
     Dosage: DOSING SCHEDULE WEEKLY / EVERY TWO WEEKS / EVERY 4 WEEKS
     Route: 040
     Dates: start: 201804, end: 20180523

REACTIONS (2)
  - Sepsis [Fatal]
  - Multiple organ dysfunction syndrome [Not Recovered/Not Resolved]

NARRATIVE: CASE EVENT DATE: 20180526
